FAERS Safety Report 12972821 (Version 1)
Quarter: 2016Q4

REPORT INFORMATION
  Report Type: Report from Study
  Country: EE (occurrence: EE)
  Receive Date: 20161124
  Receipt Date: 20161124
  Transmission Date: 20170207
  Serious: Yes (Hospitalization, Other)
  Sender: FDA-Public Use
  Company Number: EE-BRISTOL-MYERS SQUIBB COMPANY-BMS-2016-098771

PATIENT
  Age: 72 Year
  Sex: Male

DRUGS (1)
  1. NIVOLUMAB [Suspect]
     Active Substance: NIVOLUMAB
     Indication: LUNG CARCINOMA CELL TYPE UNSPECIFIED STAGE IV
     Dosage: 3 MG/KG, Q2WK
     Route: 042
     Dates: start: 20160512, end: 20161016

REACTIONS (2)
  - Pneumothorax spontaneous [Not Recovered/Not Resolved]
  - Thoracostomy [Unknown]

NARRATIVE: CASE EVENT DATE: 20160922
